FAERS Safety Report 18579550 (Version 1)
Quarter: 2020Q4

REPORT INFORMATION
  Report Type: Spontaneous
  Country: ES (occurrence: ES)
  Receive Date: 20201204
  Receipt Date: 20201204
  Transmission Date: 20210114
  Serious: Yes (Other)
  Sender: FDA-Public Use
  Company Number: ES-009507513-2012ESP001061

PATIENT
  Age: 51 Year
  Sex: Female

DRUGS (2)
  1. CELESTONE CRONODOSE [Suspect]
     Active Substance: BETAMETHASONE
     Indication: ROTATOR CUFF SYNDROME
     Dosage: DOSAGE INFORMATION: NOT REPORTED; FORMULATION: INJECTABLE SUSPENSION
     Route: 030
     Dates: start: 20201028, end: 20201028
  2. CELEBREX [Suspect]
     Active Substance: CELECOXIB
     Indication: ROTATOR CUFF SYNDROME
     Dosage: UNK
     Dates: start: 20201028

REACTIONS (2)
  - Swelling face [Unknown]
  - Dyspnoea [Unknown]

NARRATIVE: CASE EVENT DATE: 20201029
